FAERS Safety Report 6874596-4 (Version None)
Quarter: 2010Q3

REPORT INFORMATION
  Report Type: 
  Country: None (occurrence: None)
  Receive Date: 20100722
  Receipt Date: 20100712
  Transmission Date: 20110219
  Serious: Yes (Life-Threatening)
  Sender: FDA-Public Use
  Company Number: 2010-2235

PATIENT
  Age: 20 Year
  Sex: Male

DRUGS (12)
  1. DYSPORT [Suspect]
     Indication: MUSCLE SPASTICITY
     Dosage: 800 - 1000 UNITS (1000 UNITS, 1 IN 3 M), INTRAMUSCULAR 08/20/2008 - INTERRUPTED
     Route: 030
     Dates: start: 20080820
  2. RANITIDINE [Concomitant]
  3. DOXAZOSIN MESYLATE [Concomitant]
  4. ASPIRIN [Concomitant]
  5. FERROUS SULPHINE (FERROUS SULFATE) [Concomitant]
  6. TRIMETHOPRIM + SULFAMETHOXAZOLE [Concomitant]
  7. VALGANCICLOVIR HCL [Concomitant]
  8. PRAVASTATIN [Concomitant]
  9. PREDNISONE [Concomitant]
  10. MYCOPHENOLATE MOFETIL [Concomitant]
  11. TACROLIMUS [Concomitant]
  12. ALENDRONIC ACID (ALENDRONIC ACID) [Concomitant]

REACTIONS (2)
  - CARDIAC DISORDER [None]
  - HEART TRANSPLANT [None]
